FAERS Safety Report 6843737-7 (Version None)
Quarter: 2010Q3

REPORT INFORMATION
  Report Type: 
  Country: None (occurrence: None)
  Receive Date: 20100715
  Receipt Date: 20100713
  Transmission Date: 20110219
  Serious: Yes (Other)
  Sender: FDA-Public Use
  Company Number: US-BRISTOL-MYERS SQUIBB COMPANY-15190614

PATIENT
  Sex: Female

DRUGS (2)
  1. COUMADIN [Suspect]
     Indication: THROMBOSIS
     Dosage: 1-DF;7.5MG,4/WK,10MG,3/WK
  2. LOVENOX [Suspect]
     Indication: THROMBOSIS

REACTIONS (3)
  - ARTHROPATHY [None]
  - INTERNATIONAL NORMALISED RATIO FLUCTUATION [None]
  - THYROID CYST [None]
